FAERS Safety Report 4434986-6 (Version None)
Quarter: 2004Q3

REPORT INFORMATION
  Report Type: 
  Country: None (occurrence: None)
  Receive Date: 20040826
  Receipt Date: 20040816
  Transmission Date: 20050211
  Serious: No
  Sender: FDA-Public Use
  Company Number: 2004UW17341

PATIENT
  Age: 56 Year
  Sex: Female

DRUGS (11)
  1. CRESTOR [Suspect]
     Dosage: 10 MG DAILY PO
     Route: 048
  2. CLONIDINE HCL [Concomitant]
  3. DIOVAN [Concomitant]
  4. DOMPERIDONE [Concomitant]
  5. ENALAPRIL [Concomitant]
  6. HYDROCHLOROTHIAZIDE [Concomitant]
  7. HUMALOG MIX [Concomitant]
  8. LEVOTHYROXINE SODIUM [Concomitant]
  9. METFORMIN HCL [Concomitant]
  10. PAROXETINE HCL [Concomitant]
  11. PREVACID [Concomitant]

REACTIONS (5)
  - ABDOMINAL PAIN UPPER [None]
  - CHOLELITHIASIS [None]
  - HEPATIC STEATOSIS [None]
  - RENAL FAILURE ACUTE [None]
  - RHABDOMYOLYSIS [None]
